FAERS Safety Report 6840633-6 (Version None)
Quarter: 2010Q3

REPORT INFORMATION
  Report Type: 
  Country: None (occurrence: None)
  Receive Date: 20100714
  Receipt Date: 20100701
  Transmission Date: 20110219
  Serious: Yes (Hospitalization)
  Sender: FDA-Public Use
  Company Number: NL-ELI_LILLY_AND_COMPANY-NL201004003424

PATIENT
  Sex: Male

DRUGS (3)
  1. ZYPREXA [Suspect]
     Indication: SCHIZOPHRENIA
     Dosage: 20 MG, DAILY (1/D)
  2. HALDOL [Concomitant]
     Indication: SCHIZOPHRENIA
     Dosage: 1 MG, DAILY (1/D)
  3. HALDOL [Concomitant]
     Dosage: UNK, UNKNOWN

REACTIONS (3)
  - HYPERHIDROSIS [None]
  - INTENTIONAL SELF-INJURY [None]
  - PSYCHOTIC BEHAVIOUR [None]
